FAERS Safety Report 7138574-2 (Version None)
Quarter: 2010Q4

REPORT INFORMATION
  Report Type: 
  Country: None (occurrence: None)
  Receive Date: 20101118
  Receipt Date: 20101110
  Transmission Date: 20110411
  Serious: Yes (Hospitalization, Other)
  Sender: FDA-Public Use
  Company Number: 2010JP006160

PATIENT
  Age: 49 Year
  Sex: Female
  Weight: 51.3 kg

DRUGS (12)
  1. PROGRAF [Suspect]
     Indication: LUPUS NEPHRITIS
     Dosage: 1 MG, TID, ORAL
     Route: 048
     Dates: start: 20100609, end: 20100616
  2. PROGRAF [Suspect]
     Indication: SYSTEMIC LUPUS ERYTHEMATOSUS
     Dosage: 1 MG, TID, ORAL
     Route: 048
     Dates: start: 20100609, end: 20100616
  3. PREDNISOLONE [Concomitant]
  4. ASPIRIN [Concomitant]
  5. PARIET (RABEPRAZOLE SODIUM) TABLET [Concomitant]
  6. COTRIM [Concomitant]
  7. LENDORMIN (BROTIZOLAM) TABLET [Concomitant]
  8. FUNGIZONE [Concomitant]
  9. ISODINE (POVIDONE-IODINE) MOUTH WASH [Concomitant]
  10. GASTER (FAMOTIDINE) ORODISPERSIBLE CR TABLET [Concomitant]
  11. DIOVAN [Concomitant]
  12. ALFAROL (ALFACALCIDOL) [Concomitant]

REACTIONS (5)
  - BLOOD PRESSURE INCREASED [None]
  - CAROTID ARTERY STENOSIS [None]
  - CEREBRAL VASOCONSTRICTION [None]
  - CEREBROVASCULAR SPASM [None]
  - REVERSIBLE POSTERIOR LEUKOENCEPHALOPATHY SYNDROME [None]
